FAERS Safety Report 17751107 (Version 1)
Quarter: 2020Q2

REPORT INFORMATION
  Report Type: Spontaneous
  Country: US (occurrence: US)
  Receive Date: 20200506
  Receipt Date: 20200506
  Transmission Date: 20200714
  Serious: Yes (Hospitalization)
  Sender: FDA-Public Use
  Company Number: None

PATIENT
  Age: 70 Year
  Sex: Male

DRUGS (19)
  1. JANUVIA [Concomitant]
     Active Substance: SITAGLIPTIN PHOSPHATE
  2. FIBER LAX [Concomitant]
     Active Substance: CALCIUM POLYCARBOPHIL
  3. MAG OXIDE [Concomitant]
     Active Substance: MAGNESIUM OXIDE
  4. METOPROLOL. [Concomitant]
     Active Substance: METOPROLOL
  5. PREDNISONE. [Concomitant]
     Active Substance: PREDNISONE
  6. AZITHROMYCIN ANHYDROUS. [Concomitant]
     Active Substance: AZITHROMYCIN ANHYDROUS
  7. PANTOPRAZOLE [Concomitant]
     Active Substance: PANTOPRAZOLE
  8. PRAVASTATIN. [Concomitant]
     Active Substance: PRAVASTATIN
  9. FLOVENT [Concomitant]
     Active Substance: FLUTICASONE PROPIONATE
  10. FUROSEMIDE. [Concomitant]
     Active Substance: FUROSEMIDE
  11. METFORMIN [Concomitant]
     Active Substance: METFORMIN HYDROCHLORIDE
  12. POSACONAZOLE [Concomitant]
     Active Substance: POSACONAZOLE
  13. ATORVASTATIN [Concomitant]
     Active Substance: ATORVASTATIN
  14. DILTIAZEM. [Concomitant]
     Active Substance: DILTIAZEM
  15. NYSTATIN. [Concomitant]
     Active Substance: NYSTATIN
  16. VALGANCICLOV [Concomitant]
  17. MYCOPHENOLATE [Suspect]
     Active Substance: MYCOPHENOLIC ACID
     Indication: LUNG TRANSPLANT
     Route: 048
     Dates: start: 20200421
  18. TACROLIMUS. [Suspect]
     Active Substance: TACROLIMUS
     Indication: LUNG TRANSPLANT
     Route: 048
     Dates: start: 20200421
  19. SMZ-TMP [Concomitant]
     Active Substance: SULFAMETHOXAZOLE\TRIMETHOPRIM

REACTIONS (1)
  - Appendicitis perforated [None]

NARRATIVE: CASE EVENT DATE: 20200405
